FAERS Safety Report 6476571-0 (Version None)
Quarter: 2009Q4

REPORT INFORMATION
  Report Type: 
  Country: None (occurrence: None)
  Receive Date: 20091207
  Receipt Date: 20091202
  Transmission Date: 20100525
  Serious: Yes (Life-Threatening, Other)
  Sender: FDA-Public Use
  Company Number: CA-TEVA-216881USA

PATIENT
  Age: 48 Year
  Sex: Male

DRUGS (2)
  1. COPAXONE [Suspect]
     Indication: RELAPSING-REMITTING MULTIPLE SCLEROSIS
     Route: 058
     Dates: start: 20050501, end: 20090901
  2. LEVETIRACETAM [Concomitant]
     Indication: CONVULSION
     Route: 048
     Dates: start: 20081001

REACTIONS (1)
  - BURKITT'S LYMPHOMA [None]
